FAERS Safety Report 7120537-4 (Version None)
Quarter: 2010Q4

REPORT INFORMATION
  Report Type: 
  Country: None (occurrence: None)
  Receive Date: 20101124
  Receipt Date: 20101112
  Transmission Date: 20110411
  Serious: Yes (Other)
  Sender: FDA-Public Use
  Company Number: US-PFIZER INC-2010150563

PATIENT
  Age: 21 Year
  Sex: Female

DRUGS (1)
  1. SOMAVERT [Suspect]
     Route: 058

REACTIONS (1)
  - GLUCOSE TOLERANCE IMPAIRED [None]
